FAERS Safety Report 23118753 (Version 2)
Quarter: 2023Q4

REPORT INFORMATION
  Report Type: Spontaneous
  Country: US (occurrence: US)
  Receive Date: 20231028
  Receipt Date: 20231128
  Transmission Date: 20240109
  Serious: No
  Sender: FDA-Public Use
  Company Number: US-AMGEN-USASP2023192278

PATIENT
  Sex: Male

DRUGS (3)
  1. OTEZLA [Suspect]
     Active Substance: APREMILAST
     Indication: Psoriasis
     Dosage: 30 MILLIGRAM, BID
     Route: 048
     Dates: start: 20221216
  2. HUMIRA [Concomitant]
     Active Substance: ADALIMUMAB
     Dosage: PEN 40/0.4ML
  3. Citra [Concomitant]
     Dosage: 1620 MILLIGRAM

REACTIONS (1)
  - Psoriasis [Unknown]
